FAERS Safety Report 8180727-9 (Version None)
Quarter: 2012Q1

REPORT INFORMATION
  Report Type: 
  Country: None (occurrence: None)
  Receive Date: 20120302
  Receipt Date: 20120217
  Transmission Date: 20120608
  Serious: Yes (Hospitalization)
  Sender: FDA-Public Use
  Company Number: US-ROCHE-1043582

PATIENT
  Sex: Female

DRUGS (1)
  1. AVASTIN [Suspect]
     Indication: PRODUCT USED FOR UNKNOWN INDICATION
     Route: 031

REACTIONS (9)
  - ASTHENOPIA [None]
  - DEHYDRATION [None]
  - NAUSEA [None]
  - RETINAL DETACHMENT [None]
  - DECREASED APPETITE [None]
  - EYE PAIN [None]
  - VOMITING [None]
  - VISUAL IMPAIRMENT [None]
  - OCULAR HYPERTENSION [None]
